FAERS Safety Report 5720981-3 (Version None)
Quarter: 2008Q2

REPORT INFORMATION
  Report Type: 
  Country: None (occurrence: None)
  Receive Date: 20080429
  Receipt Date: 20080417
  Transmission Date: 20081010
  Serious: Yes (Life-Threatening, Hospitalization)
  Sender: FDA-Public Use
  Company Number: JP-BRISTOL-MYERS SQUIBB COMPANY-14163356

PATIENT
  Age: 27 Year
  Sex: Male

DRUGS (4)
  1. ENDOXAN [Suspect]
     Indication: LYMPHOMA
     Route: 065
  2. VINCRISTINE SULFATE [Suspect]
  3. PREDNISOLONE [Suspect]
     Indication: LYMPHOMA
     Route: 065
  4. ADRIAMYCIN PFS [Suspect]

REACTIONS (2)
  - RESPIRATORY FAILURE [None]
  - TUMOUR LYSIS SYNDROME [None]
